FAERS Safety Report 6251831-7 (Version None)
Quarter: 2009Q2

REPORT INFORMATION
  Report Type: 
  Country: None (occurrence: None)
  Receive Date: 20090629
  Receipt Date: 20090616
  Transmission Date: 20091009
  Serious: Yes (Hospitalization)
  Sender: FDA-Public Use
  Company Number: 2009AL004115

PATIENT
  Age: 48 Year
  Sex: Male

DRUGS (4)
  1. RAMIPRIL [Suspect]
     Indication: CEREBRAL INFARCTION
     Dosage: 10MG; QD
     Dates: start: 20020915
  2. ASPIRIN AND DIPYRIDAMOLE [Concomitant]
  3. PRAVASTATINENATRIUM RP [Concomitant]
  4. NEXIUM [Concomitant]

REACTIONS (1)
  - CATARACT [None]
